FAERS Safety Report 25980406 (Version 1)
Quarter: 2025Q4

REPORT INFORMATION
  Report Type: Spontaneous
  Country: EU (occurrence: EU)
  Receive Date: 20251030
  Receipt Date: 20251030
  Transmission Date: 20260118
  Serious: Yes (Hospitalization)
  Sender: NOVO NORDISK
  Company Number: None

PATIENT
  Age: 24 Year
  Sex: Female
  Weight: 80 kg

DRUGS (1)
  1. OZEMPIC [Suspect]
     Active Substance: SEMAGLUTIDE
     Indication: Intentional product misuse
     Dosage: 1 DF, QW
     Route: 058
     Dates: start: 20250915, end: 20250915

REACTIONS (4)
  - General physical health deterioration [Not Recovered/Not Resolved]
  - Pancreatitis acute [Not Recovered/Not Resolved]
  - Vomiting [Not Recovered/Not Resolved]
  - Product administered from unauthorised provider [Recovered/Resolved]

NARRATIVE: CASE EVENT DATE: 20250915
